FAERS Safety Report 24357630 (Version 1)
Quarter: 2024Q3

REPORT INFORMATION
  Report Type: Spontaneous
  Country: US (occurrence: None)
  Receive Date: 20240923
  Receipt Date: 20240923
  Transmission Date: 20241016
  Serious: Yes (Disabling, Other)
  Sender: Public
  Company Number: None

PATIENT
  Age: 38 Year
  Sex: Female
  Weight: 133.2 kg

DRUGS (2)
  1. TRULICITY [Suspect]
     Active Substance: DULAGLUTIDE
     Indication: Weight decreased
  2. TRULICITY [Suspect]
     Active Substance: DULAGLUTIDE
     Indication: Polycystic ovaries

REACTIONS (19)
  - Injection site rash [None]
  - Injection site swelling [None]
  - Injection site urticaria [None]
  - Mental disorder [None]
  - Diarrhoea [None]
  - Abdominal pain upper [None]
  - Abdominal pain upper [None]
  - Abdominal distension [None]
  - Vomiting [None]
  - Fatigue [None]
  - Pain [None]
  - Chills [None]
  - Amenorrhoea [None]
  - Weight increased [None]
  - Polycystic ovaries [None]
  - Symptom recurrence [None]
  - Hair growth abnormal [None]
  - Alopecia [None]
  - Drug ineffective [None]
